FAERS Safety Report 24300077 (Version 1)
Quarter: 2024Q3

REPORT INFORMATION
  Report Type: Spontaneous
  Country: US (occurrence: US)
  Receive Date: 20240909
  Receipt Date: 20240909
  Transmission Date: 20241017
  Serious: No
  Sender: MYLAN
  Company Number: US-MYLANLABS-2024M1080965

PATIENT
  Sex: Female

DRUGS (1)
  1. LIDOCAINE PATCH [Suspect]
     Active Substance: LIDOCAINE
     Indication: Product used for unknown indication
     Dosage: UNK
     Route: 003

REACTIONS (4)
  - Application site pruritus [Unknown]
  - Application site discomfort [Unknown]
  - Product adhesion issue [Unknown]
  - Product design issue [Unknown]

NARRATIVE: CASE EVENT DATE: 20240801
